FAERS Safety Report 5350976-3 (Version None)
Quarter: 2007Q2

REPORT INFORMATION
  Report Type: 
  Country: None (occurrence: None)
  Receive Date: 20070608
  Receipt Date: 20070530
  Transmission Date: 20071010
  Serious: Yes (Hospitalization)
  Sender: FDA-Public Use
  Company Number: ES-ELI_LILLY_AND_COMPANY-ES200706000041

PATIENT
  Age: 73 Year
  Sex: Female

DRUGS (2)
  1. FORTEO [Suspect]
     Indication: OSTEOPOROSIS
     Dosage: 20 UG, UNKNOWN
     Route: 058
     Dates: start: 20070101, end: 20070515
  2. CORTISONE ACETATE [Concomitant]
     Dosage: UNK, UNKNOWN
     Route: 065

REACTIONS (6)
  - ANOREXIA [None]
  - DYSPNOEA [None]
  - PAIN [None]
  - RESPIRATORY DISORDER [None]
  - SUFFOCATION FEELING [None]
  - SYSTEMIC LUPUS ERYTHEMATOSUS [None]
